FAERS Safety Report 10230619 (Version 1)
Quarter: 2014Q2

REPORT INFORMATION
  Report Type: Spontaneous
  Country: SE (occurrence: SE)
  Receive Date: 20140611
  Receipt Date: 20140611
  Transmission Date: 20141212
  Serious: Yes (Other)
  Sender: FDA-Public Use
  Company Number: SE-WATSON-2014-11893

PATIENT
  Age: 77 Year
  Sex: Female

DRUGS (1)
  1. ALENAT VECKOTABLETT [Suspect]
     Indication: OSTEOPOROSIS
     Dosage: 70 MG, 1/WEEK
     Route: 048

REACTIONS (1)
  - Femur fracture [Not Recovered/Not Resolved]
